FAERS Safety Report 10143067 (Version 1)
Quarter: 2014Q2

REPORT INFORMATION
  Report Type: Spontaneous
  Country: US (occurrence: US)
  Receive Date: 20140430
  Receipt Date: 20140430
  Transmission Date: 20141212
  Serious: Yes (Other)
  Sender: FDA-Public Use
  Company Number: US-AMGEN-USASP2014030307

PATIENT
  Age: 84 Year
  Sex: Male

DRUGS (14)
  1. XGEVA [Suspect]
     Indication: METASTASES TO BONE
     Dosage: UNK
     Route: 065
     Dates: start: 2012
  2. ASPIRIN [Concomitant]
  3. DONEPEZIL [Concomitant]
  4. ERGOCALCIFEROL [Concomitant]
  5. HYDROCHLOROTHIAZIDE [Concomitant]
  6. IPRATROPIUM [Concomitant]
  7. LEUPROLIDE ACETATE [Concomitant]
  8. LISINOPRIL [Concomitant]
  9. LOVASTATIN [Concomitant]
  10. MAGNESIUM OXIDE [Concomitant]
  11. NAMENDA [Concomitant]
  12. METFORMIN [Concomitant]
  13. CALCIUM [Concomitant]
  14. VITAMIN B COMPLEX [Concomitant]

REACTIONS (3)
  - Diabetes mellitus [Unknown]
  - Tooth disorder [Unknown]
  - Cognitive disorder [Unknown]
